FAERS Safety Report 9751197 (Version 1)
Quarter: 2013Q4

REPORT INFORMATION
  Report Type: Spontaneous
  Country: US (occurrence: US)
  Receive Date: 20131212
  Receipt Date: 20131212
  Transmission Date: 20140711
  Serious: No
  Sender: FDA-Public Use
  Company Number: US-BIOGENIDEC-2013BI096325

PATIENT
  Age: 59 Year
  Sex: Female

DRUGS (2)
  1. TECFIDERA [Suspect]
     Indication: MULTIPLE SCLEROSIS
     Dates: start: 20130726
  2. FLU SHOT [Concomitant]

REACTIONS (9)
  - Increased tendency to bruise [Not Recovered/Not Resolved]
  - Vessel puncture site haemorrhage [Not Recovered/Not Resolved]
  - Animal bite [Recovered/Resolved]
  - Vaccination site bruising [Recovered/Resolved]
  - General symptom [Recovered/Resolved]
  - Flushing [Recovered/Resolved]
  - Rash [Recovered/Resolved]
  - Vomiting [Recovered/Resolved]
  - Nausea [Recovered/Resolved]
